FAERS Safety Report 24075116 (Version 2)
Quarter: 2024Q3

REPORT INFORMATION
  Report Type: Spontaneous
  Country: US (occurrence: US)
  Receive Date: 20240710
  Receipt Date: 20240710
  Transmission Date: 20241017
  Serious: Yes (Other)
  Sender: IPSEN
  Company Number: US-IPSEN Group, Research and Development-2024-07612

PATIENT
  Age: 41 Year
  Sex: Female

DRUGS (8)
  1. DYSPORT [Suspect]
     Active Substance: ABOBOTULINUMTOXINA
     Indication: Skin wrinkling
     Dosage: 10 UNITS PROCERUS, 5 UNITS MEDIUM CORRUGATOR, 5 UNITS LATERAL CORRUGATOR EACH SIDE, 1 UNIT EACH LATE
     Route: 065
     Dates: start: 20240418, end: 20240418
  2. DYSPORT [Suspect]
     Active Substance: ABOBOTULINUMTOXINA
     Indication: Skin wrinkling
  3. DYSPORT [Suspect]
     Active Substance: ABOBOTULINUMTOXINA
     Indication: Off label use
  4. CELLCEPT [Concomitant]
     Active Substance: MYCOPHENOLATE MOFETIL
     Dosage: PO
     Route: 048
  5. ORENCIA [Concomitant]
     Active Substance: ABATACEPT
     Dosage: 125 MG/ ML
  6. LANTUS [Concomitant]
     Active Substance: INSULIN GLARGINE
  7. HUMALOG [Concomitant]
     Active Substance: INSULIN LISPRO
     Dosage: 100 U PER 1 ML
  8. PLAQUENIL [Concomitant]
     Active Substance: HYDROXYCHLOROQUINE SULFATE
     Indication: Systemic lupus erythematosus

REACTIONS (33)
  - Autoimmune disorder [Unknown]
  - Systemic lupus erythematosus [Unknown]
  - Headache [Unknown]
  - Abdominal pain upper [Unknown]
  - Fatigue [Unknown]
  - Blood glucose increased [Unknown]
  - Lethargy [Not Recovered/Not Resolved]
  - Somnolence [Not Recovered/Not Resolved]
  - Anxiety [Unknown]
  - Paraesthesia [Unknown]
  - Throat irritation [Unknown]
  - Feeling abnormal [Unknown]
  - Throat tightness [Unknown]
  - Dry mouth [Unknown]
  - Vision blurred [Unknown]
  - Dyspnoea [Unknown]
  - Oropharyngeal pain [Unknown]
  - Dysphagia [Unknown]
  - Ear pain [Unknown]
  - Ear discomfort [Unknown]
  - Neuralgia [Recovered/Resolved]
  - Dysphonia [Unknown]
  - Pain [Unknown]
  - Constipation [Not Recovered/Not Resolved]
  - Feeding disorder [Unknown]
  - Dizziness [Unknown]
  - Influenza like illness [Unknown]
  - Panic attack [Unknown]
  - Yawning [Not Recovered/Not Resolved]
  - Dyspnoea [Not Recovered/Not Resolved]
  - Illness [Unknown]
  - Off label use [Unknown]
  - Therapeutic response shortened [Unknown]

NARRATIVE: CASE EVENT DATE: 20240418
